FAERS Safety Report 9364467 (Version 1)
Quarter: 2013Q2

REPORT INFORMATION
  Report Type: Spontaneous
  Country: CA (occurrence: CA)
  Receive Date: 20130624
  Receipt Date: 20130624
  Transmission Date: 20140414
  Serious: Yes (Death, Hospitalization)
  Sender: FDA-Public Use
  Company Number: CA-ACTAVIS-2013-10795

PATIENT
  Age: 64 Year
  Sex: Female

DRUGS (2)
  1. DOCETAXEL (UNKNOWN) [Suspect]
     Indication: BREAST CANCER METASTATIC
     Dosage: 75 MG/M2 EVERY 3 WEEKS
     Route: 065
  2. PAMIDRONATE [Suspect]
     Indication: BREAST CANCER METASTATIC
     Dosage: 90 MG EVERY 3 WEEKS
     Route: 065

REACTIONS (10)
  - Pneumonitis [Fatal]
  - Escherichia test positive [None]
  - Pneumonia [None]
  - Hypotension [None]
  - Acute respiratory distress syndrome [None]
  - Organising pneumonia [None]
  - Pyrexia [None]
  - Lung infiltration [None]
  - Dyspnoea [None]
  - Oxygen saturation decreased [None]
